FAERS Safety Report 13977095 (Version 1)
Quarter: 2017Q3

REPORT INFORMATION
  Report Type: Spontaneous
  Country: US (occurrence: US)
  Receive Date: 20170915
  Receipt Date: 20170915
  Transmission Date: 20171128
  Serious: No
  Sender: FDA-Public Use
  Company Number: US-ROCHE-715049

PATIENT

DRUGS (1)
  1. HERCEPTIN [Suspect]
     Active Substance: TRASTUZUMAB
     Indication: PRODUCT USED FOR UNKNOWN INDICATION
     Dosage: COMPLETED THERAPY WITH HERCEPTIN ON 31 JANUARY (DATE NOT SPECIFIED)
     Route: 065

REACTIONS (2)
  - Onychoclasis [Unknown]
  - Nail disorder [Unknown]
